FAERS Safety Report 6682903-0 (Version None)
Quarter: 2010Q2

REPORT INFORMATION
  Report Type: 
  Country: None (occurrence: None)
  Receive Date: 20100415
  Receipt Date: 20100407
  Transmission Date: 20101027
  Serious: Yes (Life-Threatening, Hospitalization)
  Sender: FDA-Public Use
  Company Number: B0640628A

PATIENT
  Sex: Female
  Weight: 56 kg

DRUGS (2)
  1. ARIXTRA [Suspect]
     Indication: THROMBECTOMY
     Dosage: 7.5MG PER DAY
     Route: 058
     Dates: start: 20091123
  2. KARDEGIC [Suspect]
     Indication: DRUG USE FOR UNKNOWN INDICATION
     Dosage: 160MG UNKNOWN
     Route: 048

REACTIONS (3)
  - ANAEMIA [None]
  - INJECTION SITE HAEMATOMA [None]
  - OFF LABEL USE [None]
